FAERS Safety Report 11348238 (Version 4)
Quarter: 2016Q3

REPORT INFORMATION
  Report Type: Spontaneous
  Country: US (occurrence: US)
  Receive Date: 20150806
  Receipt Date: 20160927
  Transmission Date: 20161109
  Serious: Yes (Hospitalization, Other)
  Sender: FDA-Public Use
  Company Number: US-ELI_LILLY_AND_COMPANY-US201508000284

PATIENT
  Age: 58 Year
  Sex: Male
  Weight: 68.03 kg

DRUGS (10)
  1. AXIRON [Suspect]
     Active Substance: TESTOSTERONE
     Indication: LIBIDO DECREASED
  2. ASPIRIN                            /00002701/ [Concomitant]
     Active Substance: ASPIRIN
     Indication: CARDIAC DISORDER
     Dosage: UNK, UNKNOWN
     Route: 065
     Dates: start: 201311
  3. AXIRON [Suspect]
     Active Substance: TESTOSTERONE
     Indication: ASTHENIA
  4. LIPITOR [Concomitant]
     Active Substance: ATORVASTATIN CALCIUM
     Indication: CARDIAC DISORDER
     Dosage: UNK UNK, UNKNOWN
     Route: 065
     Dates: start: 201501
  5. AXIRON [Suspect]
     Active Substance: TESTOSTERONE
     Indication: ANDROGEN REPLACEMENT THERAPY
     Dosage: UNK, UNKNOWN
     Route: 065
     Dates: start: 201409, end: 20150125
  6. CARVEDILOL. [Concomitant]
     Active Substance: CARVEDILOL
     Indication: CARDIAC DISORDER
     Dosage: UNK UNK, UNKNOWN
     Route: 065
     Dates: start: 201311
  7. TESTOSTERONE CYPIONATE. [Suspect]
     Active Substance: TESTOSTERONE CYPIONATE
     Indication: BLOOD TESTOSTERONE DECREASED
     Dosage: UNK, UNKNOWN
     Route: 065
     Dates: start: 201309, end: 201408
  8. METFORMIN [Concomitant]
     Active Substance: METFORMIN HYDROCHLORIDE
     Indication: DIABETES MELLITUS
     Dosage: UNK, UNKNOWN
     Route: 065
     Dates: start: 201501
  9. GLIPIZIDE. [Concomitant]
     Active Substance: GLIPIZIDE
     Indication: DIABETES MELLITUS
     Dosage: UNK, UNKNOWN
     Route: 065
     Dates: start: 201501
  10. BRILINTA [Concomitant]
     Active Substance: TICAGRELOR
     Indication: CARDIAC DISORDER
     Dosage: UNK UNK, UNKNOWN
     Route: 065
     Dates: start: 201311

REACTIONS (5)
  - Coronary artery stenosis [Recovered/Resolved]
  - Hypotension [Recovered/Resolved]
  - Myocardial infarction [Recovered/Resolved]
  - Asthenia [Not Recovered/Not Resolved]
  - Arterial occlusive disease [Unknown]

NARRATIVE: CASE EVENT DATE: 20150125
